FAERS Safety Report 8262653 (Version 3)
Quarter: 2013Q2

REPORT INFORMATION
  Report Type: Spontaneous
  Country: US (occurrence: US)
  Receive Date: 20111124
  Receipt Date: 20130405
  Transmission Date: 20140414
  Serious: No
  Sender: FDA-Public Use
  Company Number: US-PFIZER INC-2011285301

PATIENT
  Sex: Male

DRUGS (1)
  1. MINIPRESS [Suspect]
     Dosage: 2 MG, UNK

REACTIONS (1)
  - Local swelling [Not Recovered/Not Resolved]
